FAERS Safety Report 22044654 (Version 1)
Quarter: 2023Q1

REPORT INFORMATION
  Report Type: Spontaneous
  Country: US (occurrence: None)
  Receive Date: 20230227
  Receipt Date: 20230227
  Transmission Date: 20230417
  Serious: Yes (Death)
  Sender: FDA-Public Use
  Company Number: None

PATIENT
  Age: 76 Year
  Sex: Male
  Weight: 65.77 kg

DRUGS (10)
  1. ERLEADA [Suspect]
     Active Substance: APALUTAMIDE
     Dosage: FREQUENCY : DAILY;?
     Route: 048
  2. SINEMET [Concomitant]
     Active Substance: CARBIDOPA\LEVODOPA
  3. SACCHAROMYCES CEREVISIAE [Concomitant]
     Active Substance: SACCHAROMYCES CEREVISIAE
  4. LUPRON [Concomitant]
     Active Substance: LEUPROLIDE ACETATE
  5. MIDODRINE [Concomitant]
     Active Substance: MIDODRINE
  6. PEPCID AC [Concomitant]
     Active Substance: FAMOTIDINE
  7. PREDNISONE [Concomitant]
     Active Substance: PREDNISONE
  8. SIMVASTATIN [Concomitant]
     Active Substance: SIMVASTATIN
  9. TAMSULOSIN [Concomitant]
     Active Substance: TAMSULOSIN
  10. TYLENOL [Concomitant]
     Active Substance: ACETAMINOPHEN

REACTIONS (1)
  - Death [None]
